FAERS Safety Report 8490136-0 (Version None)
Quarter: 2012Q3

REPORT INFORMATION
  Report Type: 
  Country: None (occurrence: None)
  Receive Date: 20120705
  Receipt Date: 20120705
  Transmission Date: 20120928
  Serious: Yes (Life-Threatening, Hospitalization)
  Sender: FDA-Public Use
  Company Number: DE-SANOFI-AVENTIS-2012SA042904

PATIENT
  Age: 74 Year
  Sex: Female

DRUGS (2)
  1. TAXOTERE [Suspect]
     Route: 041
     Dates: start: 20120423, end: 20120423
  2. TAXOTERE [Suspect]
     Route: 041
     Dates: start: 20120402, end: 20120402

REACTIONS (5)
  - CONFUSIONAL STATE [None]
  - SEPSIS [None]
  - COLITIS ULCERATIVE [None]
  - RENAL FAILURE ACUTE [None]
  - GASTROINTESTINAL HAEMORRHAGE [None]
